FAERS Safety Report 11212437 (Version 1)
Quarter: 2015Q2

REPORT INFORMATION
  Report Type: Spontaneous
  Country: GB (occurrence: GB)
  Receive Date: 20150623
  Receipt Date: 20150623
  Transmission Date: 20150821
  Serious: Yes (Other)
  Sender: FDA-Public Use
  Company Number: GB-BAYER-2015-315897

PATIENT
  Age: 38 Year
  Sex: Female
  Weight: 76 kg

DRUGS (4)
  1. FEXOFENADINE [Concomitant]
     Active Substance: FEXOFENADINE\FEXOFENADINE HYDROCHLORIDE
     Dosage: 120 MG, QD
  2. JAYDESS [Suspect]
     Active Substance: LEVONORGESTREL
     Indication: CONTRACEPTION
  3. FERROUS FUMARATE [Concomitant]
     Active Substance: FERROUS FUMARATE
     Dosage: 305 MG, BID
  4. JAYDESS [Suspect]
     Active Substance: LEVONORGESTREL
     Indication: MENORRHAGIA
     Dosage: 14 MCG/24HR, CONT
     Route: 015
     Dates: start: 20150326, end: 20150423

REACTIONS (9)
  - Gingival pain [Recovering/Resolving]
  - Procedural pain [None]
  - Pain [Recovering/Resolving]
  - Paraesthesia [Recovering/Resolving]
  - Abdominal pain [Recovering/Resolving]
  - Gingival swelling [Recovering/Resolving]
  - Headache [Recovering/Resolving]
  - Abdominal discomfort [Recovering/Resolving]
  - Tearfulness [Recovering/Resolving]

NARRATIVE: CASE EVENT DATE: 20150326
